FAERS Safety Report 9718314 (Version 1)
Quarter: 2013Q4

REPORT INFORMATION
  Report Type: Spontaneous
  Country: US (occurrence: US)
  Receive Date: 20131125
  Receipt Date: 20131125
  Transmission Date: 20140711
  Serious: No
  Sender: FDA-Public Use
  Company Number: US-VIVUS-2013V1000248

PATIENT
  Age: 47 Year
  Sex: Female

DRUGS (6)
  1. QSYMIA 7.5MG/46MG [Suspect]
     Indication: PRODUCT USED FOR UNKNOWN INDICATION
     Route: 048
     Dates: start: 201303
  2. QSYMIA 3.75MG/23MG [Suspect]
     Indication: PRODUCT USED FOR UNKNOWN INDICATION
     Route: 048
     Dates: start: 201303, end: 201303
  3. ZYRTEC [Concomitant]
     Indication: HYPERSENSITIVITY
     Route: 048
  4. DEXAMETHASONE [Concomitant]
     Route: 048
  5. CITALOPRAM HBR [Concomitant]
     Route: 048
  6. NAMENDA [Concomitant]
     Route: 048

REACTIONS (7)
  - Somnolence [Not Recovered/Not Resolved]
  - Hypersensitivity [Unknown]
  - Pruritus generalised [Not Recovered/Not Resolved]
  - Fatigue [Not Recovered/Not Resolved]
  - Dizziness [Not Recovered/Not Resolved]
  - Sinusitis [Unknown]
  - Headache [Unknown]
